FAERS Safety Report 4927689-2 (Version None)
Quarter: 2006Q1

REPORT INFORMATION
  Report Type: 
  Country: None (occurrence: None)
  Receive Date: 20060228
  Receipt Date: 20051017
  Transmission Date: 20060701
  Serious: Yes (Hospitalization, Disabling)
  Sender: FDA-Public Use
  Company Number: US-MERCK-0510USA07677

PATIENT
  Age: 56 Year
  Sex: Male
  Weight: 73 kg

DRUGS (13)
  1. VIOXX [Suspect]
     Indication: OSTEOARTHRITIS
     Route: 048
     Dates: start: 20000603, end: 20020528
  2. VIOXX [Suspect]
     Indication: ARTHRALGIA
     Route: 048
     Dates: start: 20000603, end: 20020528
  3. ULTRAM [Concomitant]
     Indication: OSTEOARTHRITIS
     Route: 065
  4. LOTENSIN [Concomitant]
     Indication: HYPERTENSION
     Route: 065
     Dates: start: 20010101, end: 20020101
  5. MONOPRIL [Concomitant]
     Indication: HYPERTENSION
     Route: 065
     Dates: start: 20010101, end: 20020101
  6. HYDRODIURIL [Concomitant]
     Indication: HYPERTENSION
     Route: 048
     Dates: start: 20010101, end: 20020101
  7. ADVIL [Concomitant]
     Indication: PAIN
     Route: 065
  8. ADVIL [Concomitant]
     Indication: HEADACHE
     Route: 065
  9. MOTRIN [Concomitant]
     Indication: PAIN
     Route: 065
  10. MOTRIN [Concomitant]
     Indication: HEADACHE
     Route: 065
  11. OXYCODONE [Concomitant]
     Route: 065
  12. ACETAMINOPHEN [Concomitant]
     Indication: PAIN
     Route: 065
  13. ACETAMINOPHEN [Concomitant]
     Indication: HEADACHE
     Route: 065

REACTIONS (19)
  - ALCOHOL WITHDRAWAL SYNDROME [None]
  - ANAEMIA POSTOPERATIVE [None]
  - ANXIETY [None]
  - AORTIC DISSECTION [None]
  - AORTIC VALVE INCOMPETENCE [None]
  - ATELECTASIS [None]
  - CHRONIC OBSTRUCTIVE PULMONARY DISEASE [None]
  - DELIRIUM TREMENS [None]
  - DEPRESSION [None]
  - ENCEPHALOPATHY [None]
  - HYPERTENSION [None]
  - LEUKOCYTOSIS [None]
  - PANIC ATTACK [None]
  - PERSONALITY DISORDER [None]
  - POST-TRAUMATIC STRESS DISORDER [None]
  - RENAL FAILURE [None]
  - SEXUAL DYSFUNCTION [None]
  - SLEEP DISORDER [None]
  - THROMBOSIS [None]
